FAERS Safety Report 10141530 (Version 5)
Quarter: 2014Q2

REPORT INFORMATION
  Report Type: Spontaneous
  Country: US (occurrence: US)
  Receive Date: 20140429
  Receipt Date: 20140523
  Transmission Date: 20141212
  Serious: Yes (Hospitalization)
  Sender: FDA-Public Use
  Company Number: US-JNJFOC-20140416084

PATIENT
  Age: 84 Year
  Sex: Female

DRUGS (2)
  1. XARELTO [Suspect]
     Indication: PRODUCT USED FOR UNKNOWN INDICATION
     Route: 048
  2. KCENTRA [Concomitant]
     Indication: DRUG THERAPY
     Route: 042
     Dates: start: 201404, end: 201404

REACTIONS (2)
  - Road traffic accident [Unknown]
  - Subdural haematoma [Unknown]
